FAERS Safety Report 5981367-X (Version None)
Quarter: 2008Q4

REPORT INFORMATION
  Report Type: 
  Country: None (occurrence: None)
  Receive Date: 20081205
  Receipt Date: 20081202
  Transmission Date: 20090506
  Serious: Yes (Life-Threatening, Hospitalization, Other)
  Sender: FDA-Public Use
  Company Number: FR-BRISTOL-MYERS SQUIBB COMPANY-14426506

PATIENT
  Age: 74 Year
  Sex: Male

DRUGS (10)
  1. SINEMET CR [Suspect]
     Indication: PARKINSON'S DISEASE
     Dosage: 1 DOSAGEFORM = 1 TAB
     Route: 048
  2. FLUOXETINE [Suspect]
     Indication: DEPRESSION
     Dosage: 1 DOSAGEFORM = 1 UNIT
     Route: 048
  3. TEMESTA [Suspect]
     Dosage: STRENGTH 2.5MG. 1 DOSAGEFORM = 1 TAB
     Route: 048
  4. ZOLPIDEM [Suspect]
     Dosage: STRENGTH 10MG. 1 DOSAGEFORM = 1 TAB
     Route: 048
  5. XATRAL [Suspect]
     Dosage: 1 DOSAGEFORM = 1 UNIT
     Route: 048
  6. TRANSIPEG [Concomitant]
  7. DAFALGAN [Concomitant]
  8. DUSPATALIN [Concomitant]
  9. MOTILIUM [Concomitant]
  10. NEXIUM [Concomitant]

REACTIONS (3)
  - FALL [None]
  - HAEMATOMA [None]
  - RHABDOMYOLYSIS [None]
